FAERS Safety Report 8086796-9 (Version None)
Quarter: 2012Q1

REPORT INFORMATION
  Report Type: 
  Country: None (occurrence: None)
  Receive Date: 20120128
  Receipt Date: 20110519
  Transmission Date: 20120608
  Serious: No
  Sender: FDA-Public Use
  Company Number: US-ABBOTT-11P-163-0726947-00

PATIENT
  Age: 48 Year
  Sex: Female

DRUGS (5)
  1. ALLEGRA [Concomitant]
     Indication: PRODUCT USED FOR UNKNOWN INDICATION
  2. HUMIRA [Suspect]
     Indication: RHEUMATOID ARTHRITIS
  3. ALLERGY SHOTS [Concomitant]
     Indication: HYPERSENSITIVITY
  4. PATADAY [Concomitant]
     Indication: PRODUCT USED FOR UNKNOWN INDICATION
     Dosage: EYE GTTS
  5. UNKNOWN MEDICATION [Concomitant]
     Indication: PRODUCT USED FOR UNKNOWN INDICATION
     Route: 045

REACTIONS (2)
  - NASAL CONGESTION [None]
  - VISION BLURRED [None]
